FAERS Safety Report 7041603-8 (Version None)
Quarter: 2010Q4

REPORT INFORMATION
  Report Type: 
  Country: None (occurrence: None)
  Receive Date: 20101013
  Receipt Date: 20100426
  Transmission Date: 20110411
  Serious: No
  Sender: FDA-Public Use
  Company Number: US-ASTRAZENECA-2010SE18721

PATIENT
  Age: 79 Year
  Sex: Female

DRUGS (6)
  1. SYMBICORT [Suspect]
     Dosage: 160/4.5 UG TWO PUFFS
     Route: 055
     Dates: start: 20100422
  2. PULMICORT RESPULES [Suspect]
     Route: 055
     Dates: start: 20080101, end: 20100422
  3. PREDNISONE [Concomitant]
  4. IPRATROPIUM BROMIDE [Concomitant]
  5. MUCINEX [Concomitant]
  6. ALBUTEROL [Concomitant]

REACTIONS (4)
  - BACTERIAL INFECTION [None]
  - CHOKING [None]
  - COUGH [None]
  - INCREASED UPPER AIRWAY SECRETION [None]
